FAERS Safety Report 6390113-X (Version None)
Quarter: 2009Q4

REPORT INFORMATION
  Report Type: 
  Country: None (occurrence: None)
  Receive Date: 20091006
  Receipt Date: 20090925
  Transmission Date: 20100525
  Serious: Yes (Hospitalization)
  Sender: FDA-Public Use
  Company Number: FR-GENENTECH-291458

PATIENT
  Sex: Male

DRUGS (6)
  1. MABTHERA [Suspect]
     Indication: MANTLE CELL LYMPHOMA
     Dosage: 375 MG/M2, UNK
     Route: 041
     Dates: start: 20090224
  2. ARACYTINE [Suspect]
     Indication: MANTLE CELL LYMPHOMA
     Dosage: 2 MG/M2, UNK
     Route: 041
     Dates: start: 20090224
  3. CISPLATIN [Suspect]
     Indication: MANTLE CELL LYMPHOMA
     Dosage: 100 MG/M2, UNK
     Route: 042
     Dates: start: 20090224
  4. DEXAMETHASONE 0.5MG TAB [Suspect]
     Indication: MANTLE CELL LYMPHOMA
     Dosage: 40 MG/M2, UNK
     Route: 065
     Dates: start: 20090224
  5. PEGFILGRASTIM [Suspect]
     Indication: PROPHYLAXIS
     Dosage: 6 MG, UNK
     Route: 065
     Dates: start: 20090224
  6. EPOETIN ALFA [Suspect]
     Indication: PROPHYLAXIS
     Dosage: 30000 IU, UNK
     Route: 065
     Dates: start: 20090224

REACTIONS (2)
  - FEBRILE BONE MARROW APLASIA [None]
  - RENAL FAILURE ACUTE [None]
